FAERS Safety Report 9464139 (Version 2)
Quarter: 2013Q3

REPORT INFORMATION
  Report Type: Spontaneous
  Country: JP (occurrence: JP)
  Receive Date: 20130819
  Receipt Date: 20130906
  Transmission Date: 20140515
  Serious: Yes (Hospitalization, Other)
  Sender: FDA-Public Use
  Company Number: JP-MYLANLABS-2013S1017629

PATIENT
  Age: 11 Year
  Sex: Female

DRUGS (6)
  1. CARBOPLATIN [Suspect]
     Indication: LYMPHOMA
     Route: 041
     Dates: start: 20121214
  2. METHOTREXATE [Concomitant]
     Indication: LYMPHOMA
     Route: 037
  3. CYLOCIDE [Concomitant]
     Indication: LYMPHOMA
     Route: 037
  4. RITUXAN [Concomitant]
     Indication: LYMPHOMA
     Route: 041
  5. IFOMIDE [Concomitant]
     Indication: LYMPHOMA
     Route: 041
  6. ETOPOSIDE [Concomitant]
     Indication: LYMPHOMA
     Route: 041

REACTIONS (1)
  - Leukoencephalopathy [Recovering/Resolving]
